FAERS Safety Report 14512740 (Version 8)
Quarter: 2023Q1

REPORT INFORMATION
  Report Type: Spontaneous
  Country: US (occurrence: US)
  Receive Date: 20180209
  Receipt Date: 20230222
  Transmission Date: 20230417
  Serious: Yes (Hospitalization)
  Sender: FDA-Public Use
  Company Number: US-VIFOR (INTERNATIONAL) INC.-VIT-2018-01375

PATIENT
  Age: 63 Year
  Sex: Female
  Weight: 48 kg

DRUGS (17)
  1. VELTASSA [Suspect]
     Active Substance: PATIROMER
     Indication: Hyperkalaemia
     Route: 048
     Dates: start: 20170907
  2. VELTASSA [Suspect]
     Active Substance: PATIROMER
     Route: 048
     Dates: start: 201801
  3. VELTASSA [Suspect]
     Active Substance: PATIROMER
     Route: 048
  4. VELTASSA [Suspect]
     Active Substance: PATIROMER
     Route: 048
  5. AMLODIPINE BESYLATE [Concomitant]
     Active Substance: AMLODIPINE BESYLATE
  6. ASPIRIN [Concomitant]
     Active Substance: ASPIRIN
  7. CALCITRIOL [Concomitant]
     Active Substance: CALCITRIOL
  8. CLONIDINE HYDROCHLORIDE [Concomitant]
     Active Substance: CLONIDINE HYDROCHLORIDE
  9. FOLIC ACID [Concomitant]
     Active Substance: FOLIC ACID
  10. KAYEXALATE [Concomitant]
     Active Substance: SODIUM POLYSTYRENE SULFONATE
  11. LABETALOL HYDROCHLORIDE [Concomitant]
     Active Substance: LABETALOL HYDROCHLORIDE
  12. LEVOTHYROXINE SODIUM [Concomitant]
     Active Substance: LEVOTHYROXINE SODIUM
  13. PREDNISONE [Concomitant]
     Active Substance: PREDNISONE
  14. RENVELA [Concomitant]
     Active Substance: SEVELAMER CARBONATE
  15. ATORVASTATIN CALCIUM [Concomitant]
     Active Substance: ATORVASTATIN CALCIUM
  16. SENSIPAR [Concomitant]
     Active Substance: CINACALCET HYDROCHLORIDE
  17. TERAZOSIN HYDROCHLORIDE [Concomitant]
     Active Substance: TERAZOSIN HYDROCHLORIDE

REACTIONS (8)
  - Hospitalisation [Unknown]
  - Aortic valve replacement [Unknown]
  - Fistula repair [Unknown]
  - Blood potassium increased [Unknown]
  - Constipation [Unknown]
  - Off label use [Unknown]
  - Product dose omission issue [Unknown]
  - Drug ineffective [Unknown]

NARRATIVE: CASE EVENT DATE: 20170901
